FAERS Safety Report 9224741 (Version 1)
Quarter: 2013Q2

REPORT INFORMATION
  Report Type: Spontaneous
  Country: US (occurrence: US)
  Receive Date: 20130411
  Receipt Date: 20130411
  Transmission Date: 20140414
  Serious: Yes (Hospitalization, Other)
  Sender: FDA-Public Use
  Company Number: US-ASTELLAS-2013US002421

PATIENT
  Age: 25 Year
  Sex: Female
  Weight: 62 kg

DRUGS (4)
  1. PROGRAF [Suspect]
     Indication: LIVER TRANSPLANT
     Dosage: 4 MG, BID
     Route: 048
  2. PROGRAF [Suspect]
     Dosage: 3 MG AM, 4 MG HS
     Route: 048
  3. TAMIFLU [Concomitant]
     Indication: INFLUENZA
     Dosage: UNK
     Route: 065
  4. PRENATAL VITAMINS                  /02014401/ [Concomitant]
     Indication: PREGNANCY
     Dosage: UNK
     Route: 065
     Dates: start: 201210

REACTIONS (3)
  - Exposure during pregnancy [Unknown]
  - Varices oesophageal [Unknown]
  - Influenza [Recovered/Resolved]
